FAERS Safety Report 6252396-6 (Version None)
Quarter: 2009Q2

REPORT INFORMATION
  Report Type: 
  Country: None (occurrence: None)
  Receive Date: 20090629
  Receipt Date: 20090629
  Transmission Date: 20091009
  Serious: Yes (Other)
  Sender: FDA-Public Use
  Company Number: None

PATIENT
  Age: 59 Year
  Sex: Male
  Weight: 225 kg

DRUGS (1)
  1. ZICAM/HOMEOPATHIC/ [Suspect]
     Indication: NASOPHARYNGITIS
     Dosage: SPRAY
     Dates: start: 20041129, end: 20041215

REACTIONS (1)
  - ANOSMIA [None]
